FAERS Safety Report 25020741 (Version 1)
Quarter: 2025Q1

REPORT INFORMATION
  Report Type: Spontaneous
  Country: US (occurrence: US)
  Receive Date: 20250227
  Receipt Date: 20250227
  Transmission Date: 20250408
  Serious: No
  Sender: PRIMUS PHARMACEUTICALS
  Company Number: US-PRIMUS-2024-US-024005

PATIENT
  Age: 94 Year
  Sex: Female

DRUGS (5)
  1. SERNIVO [Suspect]
     Active Substance: BETAMETHASONE DIPROPIONATE
     Indication: Product used for unknown indication
     Route: 061
  2. SIMVASTATIN [Concomitant]
     Active Substance: SIMVASTATIN
  3. CARVEDILOL [Concomitant]
     Active Substance: CARVEDILOL
  4. FUROSEMIDE [Concomitant]
     Active Substance: FUROSEMIDE
  5. Calcitrate with Vitamin D [Concomitant]

REACTIONS (2)
  - Eye irritation [Recovering/Resolving]
  - Headache [Recovering/Resolving]
